FAERS Safety Report 20906983 (Version 1)
Quarter: 2022Q2

REPORT INFORMATION
  Report Type: Spontaneous
  Country: JP (occurrence: JP)
  Receive Date: 20220602
  Receipt Date: 20220602
  Transmission Date: 20220721
  Serious: Yes (Life-Threatening, Other)
  Sender: FDA-Public Use
  Company Number: JP-MLMSERVICE-20220519-3566763-1

PATIENT
  Age: 28 Year
  Sex: Female

DRUGS (4)
  1. GEMCITABINE HYDROCHLORIDE [Suspect]
     Active Substance: GEMCITABINE HYDROCHLORIDE
     Indication: Malignant ascites
     Dosage: 1,000 MG/M^2 OF ON DAYS 1 AND 8
     Route: 048
  2. GEMCITABINE HYDROCHLORIDE [Suspect]
     Active Substance: GEMCITABINE HYDROCHLORIDE
     Indication: Cystadenocarcinoma pancreas
  3. GIMERACIL\OTERACIL\TEGAFUR [Concomitant]
     Active Substance: GIMERACIL\OTERACIL\TEGAFUR
     Indication: Malignant ascites
     Dosage: FROM DAYS 1 TO 14, REPEATED EVERY 3 WEEKS PER COURSE
     Route: 048
  4. GIMERACIL\OTERACIL\TEGAFUR [Concomitant]
     Active Substance: GIMERACIL\OTERACIL\TEGAFUR
     Indication: Cystadenocarcinoma pancreas

REACTIONS (1)
  - Neutropenia [Unknown]
